FAERS Safety Report 9040788 (Version 1)
Quarter: 2013Q1

REPORT INFORMATION
  Report Type: Report from Study
  Country: US (occurrence: US)
  Receive Date: 20130129
  Receipt Date: 20130129
  Transmission Date: 20140127
  Serious: No
  Sender: FDA-Public Use
  Company Number: US-ABBOTT-12P-163-0900489-00

PATIENT
  Sex: Female
  Weight: 96.25 kg

DRUGS (10)
  1. HUMIRA 40 MG/0.8 ML PEN [Suspect]
     Indication: CROHN^S DISEASE
     Dates: start: 20111209
  2. XANAX [Concomitant]
     Indication: ANXIETY
  3. MULTIVITAMIN [Concomitant]
     Indication: VITAMIN SUPPLEMENTATION
  4. PRILOSEC [Concomitant]
     Indication: GASTROOESOPHAGEAL REFLUX DISEASE
  5. BIOTIN [Concomitant]
     Indication: VITAMIN SUPPLEMENTATION
  6. B COMPLEX [Concomitant]
     Indication: VITAMIN SUPPLEMENTATION
  7. CELEXA [Concomitant]
     Indication: DEPRESSION
  8. TRAZADONE [Concomitant]
     Indication: DEPRESSION
  9. FEROUS SULFATE [Concomitant]
     Indication: IRON DEFICIENCY
  10. AMBIEN [Concomitant]
     Indication: INSOMNIA

REACTIONS (1)
  - Increased tendency to bruise [Not Recovered/Not Resolved]
